FAERS Safety Report 10231433 (Version 1)
Quarter: 2014Q2

REPORT INFORMATION
  Report Type: Spontaneous
  Country: FR (occurrence: FR)
  Receive Date: 20140611
  Receipt Date: 20140611
  Transmission Date: 20141212
  Serious: Yes (Hospitalization)
  Sender: FDA-Public Use
  Company Number: FR-ASTRAZENECA-2014SE39986

PATIENT
  Age: 92 Year
  Sex: Female

DRUGS (9)
  1. MOPRAL [Suspect]
     Route: 048
     Dates: end: 20140519
  2. SMECTA [Concomitant]
     Route: 048
  3. KARDEGIC [Concomitant]
     Route: 048
  4. OROCAL D3 [Concomitant]
     Route: 048
  5. SINEMET [Concomitant]
     Route: 048
  6. DAFALGAN [Concomitant]
     Route: 048
  7. ACEBUTOLOL [Concomitant]
     Route: 048
  8. LEXOMIL [Concomitant]
     Route: 048
  9. STILNOX [Concomitant]
     Route: 048

REACTIONS (6)
  - Balance disorder [Unknown]
  - Inappropriate antidiuretic hormone secretion [Unknown]
  - Nephropathy [Unknown]
  - Adrenal insufficiency [Unknown]
  - Hyponatraemia [Recovering/Resolving]
  - Diarrhoea [Unknown]
